FAERS Safety Report 4319909-2 (Version None)
Quarter: 2004Q1

REPORT INFORMATION
  Report Type: 
  Country: None (occurrence: None)
  Receive Date: 20040316
  Receipt Date: 20040310
  Transmission Date: 20041129
  Serious: Yes (Other)
  Sender: FDA-Public Use
  Company Number: 2004203077US

PATIENT
  Age: 48 Year
  Sex: Female

DRUGS (1)
  1. CELEBREX [Suspect]
     Indication: MUSCLE CRAMP
     Dosage: 200 MG, QD
     Dates: start: 20040310, end: 20040310

REACTIONS (7)
  - AGITATION [None]
  - BLOOD PRESSURE DECREASED [None]
  - DYSURIA [None]
  - HEART RATE DECREASED [None]
  - PRURITUS [None]
  - PULSE PRESSURE DECREASED [None]
  - RESTLESSNESS [None]
